FAERS Safety Report 9828765 (Version 1)
Quarter: 2014Q1

REPORT INFORMATION
  Report Type: Spontaneous
  Country: US (occurrence: US)
  Receive Date: 20140117
  Receipt Date: 20140117
  Transmission Date: 20141002
  Serious: Yes (Hospitalization)
  Sender: FDA-Public Use
  Company Number: US-AMGEN-USASP2014002270

PATIENT
  Age: 20 Year
  Sex: Female

DRUGS (1)
  1. ENBREL [Suspect]
     Indication: SPONDYLOARTHROPATHY
     Dosage: 50 MG, QWK
     Route: 065
     Dates: start: 2013

REACTIONS (3)
  - Decreased appetite [Recovered/Resolved]
  - Fungal infection [Recovered/Resolved]
  - Extra dose administered [Recovered/Resolved]
